FAERS Safety Report 9188090 (Version 3)
Quarter: 2013Q4

REPORT INFORMATION
  Report Type: Spontaneous
  Country: US (occurrence: US)
  Receive Date: 20130325
  Receipt Date: 20131227
  Transmission Date: 20140711
  Serious: Yes (Death, Hospitalization)
  Sender: FDA-Public Use
  Company Number: US-B.I. PHARMACEUTICALS,INC./RIDGEFIELD-2013-BI-07632BP

PATIENT
  Sex: Female
  Weight: 85.73 kg

DRUGS (19)
  1. PRADAXA [Suspect]
     Indication: ATRIAL FIBRILLATION
     Dosage: 300 MG
     Route: 048
     Dates: start: 20110401, end: 20110411
  2. ALDACTONE [Concomitant]
     Dosage: 50 MG
  3. AMBIEN [Concomitant]
     Dosage: 10 MG
  4. ASPIRIN [Concomitant]
     Dosage: 81 MG
  5. VITAMIN B [Concomitant]
  6. DIAZEPAM [Concomitant]
     Dosage: 10 MG
  7. GLIMEPIRIDE [Concomitant]
     Dosage: 2 MG
  8. HYDROCODONE [Concomitant]
  9. KLOR-CON [Concomitant]
  10. LASIX [Concomitant]
     Dosage: 40 MG
  11. LISINOPRIL [Concomitant]
     Dosage: 20 MG
  12. METFORMIN [Concomitant]
     Dosage: 22 G
  13. MULTIVITAMIN [Concomitant]
  14. METOPROLOL [Concomitant]
     Dosage: 50 MG
  15. MORPHINE [Concomitant]
     Dosage: 60 MG
     Route: 048
  16. PREDNISONE [Concomitant]
     Dosage: 20 MG
  17. SYNTHROID [Concomitant]
     Dosage: 25 MCG
  18. VITAMIN C [Concomitant]
  19. VITAMIN D3 [Concomitant]

REACTIONS (7)
  - Upper gastrointestinal haemorrhage [Fatal]
  - Respiratory failure [Fatal]
  - Intestinal ischaemia [Fatal]
  - Sepsis [Fatal]
  - Vaginal haemorrhage [Unknown]
  - Renal failure [Unknown]
  - Hypoglycaemia [Unknown]
